FAERS Safety Report 23964112 (Version 1)
Quarter: 2024Q2

REPORT INFORMATION
  Report Type: Spontaneous
  Country: US (occurrence: None)
  Receive Date: 20240611
  Receipt Date: 20240611
  Transmission Date: 20240715
  Serious: Yes (Hospitalization)
  Sender: FDA-Public Use
  Company Number: None

PATIENT
  Age: 61 Year
  Sex: Male

DRUGS (1)
  1. INLYTA [Suspect]
     Active Substance: AXITINIB
     Indication: Renal cancer
     Dosage: OTHER FREQUENCY : EVERY12HOURS;?
     Route: 048
     Dates: start: 202311

REACTIONS (2)
  - Hypotension [None]
  - Dehydration [None]

NARRATIVE: CASE EVENT DATE: 20240515
